FAERS Safety Report 4480951-2 (Version None)
Quarter: 2004Q4

REPORT INFORMATION
  Report Type: 
  Country: None (occurrence: None)
  Receive Date: 20041021
  Receipt Date: 20040701
  Transmission Date: 20050328
  Serious: Yes (Other)
  Sender: FDA-Public Use
  Company Number: 200412586FR

PATIENT
  Age: 58 Year
  Sex: Female
  Weight: 58 kg

DRUGS (6)
  1. KETEK [Suspect]
     Indication: BRONCHITIS
     Route: 048
     Dates: start: 20040426
  2. ATURGYL [Concomitant]
     Indication: NASAL CONGESTION
     Route: 055
     Dates: start: 20040426, end: 20040510
  3. CARBOCISTEINE [Concomitant]
     Indication: PRODUCTIVE COUGH
     Route: 048
     Dates: start: 20040426, end: 20040510
  4. VENTOLINE AEROSOL [Concomitant]
     Indication: DYSPNOEA
     Dates: start: 20040426, end: 20040510
  5. OROPIVALONE [Concomitant]
     Dates: start: 20040426
  6. ACETAMINOPHEN [Concomitant]
     Indication: PYREXIA
     Route: 048
     Dates: start: 20040426

REACTIONS (1)
  - ANOSMIA [None]
